FAERS Safety Report 7682087-6 (Version None)
Quarter: 2011Q3

REPORT INFORMATION
  Report Type: 
  Country: None (occurrence: None)
  Receive Date: 20110810
  Receipt Date: 20110801
  Transmission Date: 20111222
  Serious: Yes (Hospitalization)
  Sender: FDA-Public Use
  Company Number: 1000022648

PATIENT
  Age: 76 Year
  Sex: Female

DRUGS (3)
  1. NEBIVOLOL HCL [Suspect]
     Dosage: 5 MG (5 MG, 1 IN 1 D), ORAL
     Route: 048
     Dates: end: 20101003
  2. IRBESARTAN [Suspect]
     Dosage: 37.5 MG (37.5 MG, 1 IN 1 D), ORAL
     Route: 048
     Dates: end: 20101003
  3. LEXOMIL (BROMAZEPAM) [Suspect]
     Dosage: ORAL
     Route: 048
     Dates: end: 20101003

REACTIONS (4)
  - HEPATIC STEATOSIS [None]
  - PANCREATIC DUCT DILATATION [None]
  - JAUNDICE [None]
  - CHOLESTASIS [None]
